FAERS Safety Report 7215234-0 (Version None)
Quarter: 2011Q1

REPORT INFORMATION
  Report Type: 
  Country: None (occurrence: None)
  Receive Date: 20110107
  Receipt Date: 20101227
  Transmission Date: 20110831
  Serious: Yes (Other)
  Sender: FDA-Public Use
  Company Number: PHHY2010FR83915

PATIENT
  Sex: Male
  Weight: 77 kg

DRUGS (1)
  1. TAREG [Suspect]
     Dosage: 80 MG (1 TABLET) DAILY
     Route: 048
     Dates: start: 20020902, end: 20101002

REACTIONS (3)
  - VESSEL PERFORATION [None]
  - GINGIVITIS [None]
  - CONJUNCTIVAL HAEMORRHAGE [None]
